FAERS Safety Report 6066183-5 (Version None)
Quarter: 2009Q1

REPORT INFORMATION
  Report Type: 
  Country: None (occurrence: None)
  Receive Date: 20090205
  Receipt Date: 20090127
  Transmission Date: 20090719
  Serious: Yes (Hospitalization, Other)
  Sender: FDA-Public Use
  Company Number: PHEH2007US02757

PATIENT
  Sex: Female
  Weight: 54.421 kg

DRUGS (7)
  1. ESTRADERM [Suspect]
     Indication: HORMONE REPLACEMENT THERAPY
     Route: 062
     Dates: start: 19950601
  2. PREMARIN [Suspect]
     Indication: HORMONE REPLACEMENT THERAPY
     Dosage: 0.625 MG, UNK
     Route: 048
     Dates: start: 19960701
  3. PROVERA [Suspect]
     Indication: HORMONE REPLACEMENT THERAPY
     Dosage: 10 MG, UNK
     Route: 048
     Dates: start: 19960701
  4. PREMPRO [Suspect]
     Indication: HORMONE REPLACEMENT THERAPY
     Dosage: UNK, UNK
     Dates: start: 19971001
  5. PREMPRO [Suspect]
     Dosage: UNK, UNK
     Dates: start: 20010601
  6. ZOLOFT [Concomitant]
     Indication: DEPRESSION
     Dosage: 25 MG, QD
     Route: 048
  7. ALLEGRA [Concomitant]

REACTIONS (27)
  - ANGIOPATHY [None]
  - ASTHENIA [None]
  - BIOPSY [None]
  - BREAST CALCIFICATIONS [None]
  - BREAST CANCER METASTATIC [None]
  - BREAST CANCER RECURRENT [None]
  - BREAST LUMP REMOVAL [None]
  - BREAST MASS [None]
  - CARDIAC DISORDER [None]
  - CHILLS [None]
  - DEEP VEIN THROMBOSIS [None]
  - DIARRHOEA [None]
  - DYSPNOEA [None]
  - ELECTROCARDIOGRAM CHANGE [None]
  - EXERCISE TEST ABNORMAL [None]
  - FAT NECROSIS [None]
  - FATIGUE [None]
  - FIBROCYSTIC BREAST DISEASE [None]
  - MASTECTOMY [None]
  - MITRAL VALVE INCOMPETENCE [None]
  - OEDEMA PERIPHERAL [None]
  - OSTEOPOROSIS [None]
  - PRODUCTIVE COUGH [None]
  - PYREXIA [None]
  - SCAR [None]
  - THROMBOSIS [None]
  - VAGINAL HAEMORRHAGE [None]
